FAERS Safety Report 7505725-7 (Version None)
Quarter: 2011Q2

REPORT INFORMATION
  Report Type: 
  Country: None (occurrence: None)
  Receive Date: 20110526
  Receipt Date: 20110524
  Transmission Date: 20111010
  Serious: No
  Sender: FDA-Public Use
  Company Number: US-TEVA-283216USA

PATIENT
  Sex: Female

DRUGS (2)
  1. PROAIR HFA [Suspect]
     Dates: start: 20110419, end: 20110522
  2. PROAIR HFA [Suspect]
     Indication: ASTHMA EXERCISE INDUCED
     Route: 055
     Dates: start: 20110419, end: 20110503

REACTIONS (1)
  - DRUG INEFFECTIVE [None]
